FAERS Safety Report 6812633-3 (Version None)
Quarter: 2010Q3

REPORT INFORMATION
  Report Type: 
  Country: None (occurrence: None)
  Receive Date: 20100701
  Receipt Date: 20100618
  Transmission Date: 20110219
  Serious: Yes (Hospitalization, Disabling)
  Sender: FDA-Public Use
  Company Number: JP-ROCHE-540570

PATIENT
  Sex: Male

DRUGS (10)
  1. TOCILIZUMAB [Suspect]
     Indication: CASTLEMAN'S DISEASE
     Route: 041
     Dates: start: 20050829, end: 20080815
  2. TOCILIZUMAB [Suspect]
     Dosage: DOSAGE DECREASED
     Route: 041
     Dates: start: 20080829
  3. PREDNISOLONE [Suspect]
     Indication: CASTLEMAN'S DISEASE
     Route: 048
     Dates: end: 20051025
  4. PREDNISOLONE [Suspect]
     Dosage: DOSE REDUCED.
     Route: 048
     Dates: start: 20051026, end: 20090130
  5. PREDNISOLONE [Suspect]
     Dosage: DOSAGE DECREASED
     Route: 048
     Dates: start: 20090131
  6. ROCEPHIN [Concomitant]
     Dosage: ROUTE: INTRAVENOUS (NOT OTHERWISE SPECIFIED)
     Route: 042
     Dates: start: 20080107, end: 20080112
  7. FLOMOX [Concomitant]
     Route: 048
     Dates: start: 20080113, end: 20080116
  8. MUCOSTA [Concomitant]
     Route: 048
     Dates: start: 20010101
  9. TAGAMET [Concomitant]
     Route: 048
     Dates: start: 20010101
  10. ALFAROL [Concomitant]
     Route: 048

REACTIONS (6)
  - HYPERCHOLESTEROLAEMIA [None]
  - NIGHTMARE [None]
  - OBSESSIVE THOUGHTS [None]
  - PNEUMONIA [None]
  - RASH [None]
  - RHINITIS [None]
